FAERS Safety Report 6258232-6 (Version None)
Quarter: 2009Q3

REPORT INFORMATION
  Report Type: 
  Country: None (occurrence: None)
  Receive Date: 20090702
  Receipt Date: 20090702
  Transmission Date: 20100115
  Serious: Yes (Death)
  Sender: FDA-Public Use
  Company Number: None

PATIENT
  Age: 66 Year
  Sex: Male
  Weight: 81.6475 kg

DRUGS (1)
  1. DIGOXIN [Suspect]
     Indication: HEART RATE IRREGULAR
     Dosage: .250 1 PILL DAILEY PO
     Route: 048
     Dates: start: 20041122, end: 20061009

REACTIONS (2)
  - CARDIOACTIVE DRUG LEVEL INCREASED [None]
  - MYOCARDIAL INFARCTION [None]
